FAERS Safety Report 4578229-1 (Version None)
Quarter: 2005Q1

REPORT INFORMATION
  Report Type: 
  Country: None (occurrence: None)
  Receive Date: 20050201
  Receipt Date: 20050201
  Transmission Date: 20050727
  Serious: Yes (Other)
  Sender: FDA-Public Use
  Company Number: None

PATIENT
  Age: 42 Year
  Sex: Female

DRUGS (1)
  1. MAXZIDE [Suspect]
     Dosage: 1 TAB Q DAILY PO
     Route: 048
     Dates: start: 20040621

REACTIONS (1)
  - HYPONATRAEMIA [None]
